FAERS Safety Report 21587214 (Version 5)
Quarter: 2022Q4

REPORT INFORMATION
  Report Type: Report from Study
  Country: GB (occurrence: GB)
  Receive Date: 20221114
  Receipt Date: 20221209
  Transmission Date: 20230113
  Serious: Yes (Other)
  Sender: FDA-Public Use
  Company Number: GB-GBT-017141

PATIENT
  Sex: Female
  Weight: 46.7 kg

DRUGS (5)
  1. VOXELOTOR [Suspect]
     Active Substance: VOXELOTOR
     Indication: Haemolytic anaemia
     Dosage: SUGGESTED INCREASE TO 1G/1.5G ALTERNATING DAYS??LAST DOSE PRIOR TO EVENT ONSET DATE WAS 29-JUN-2022
     Dates: start: 20221102
  2. VOXELOTOR [Suspect]
     Active Substance: VOXELOTOR
     Indication: Haemolytic anaemia
     Route: 048
     Dates: start: 20220429
  3. VOXELOTOR [Suspect]
     Active Substance: VOXELOTOR
     Indication: Haemolytic anaemia
     Dates: start: 20220915
  4. FOLIC ACID [Concomitant]
     Active Substance: FOLIC ACID
     Indication: Sickle cell disease
     Route: 048
  5. PENICILLIN V [Concomitant]
     Active Substance: PENICILLIN V
     Indication: Sickle cell disease
     Route: 048

REACTIONS (4)
  - Abortion spontaneous incomplete [Recovered/Resolved]
  - Sickle cell anaemia with crisis [Recovered/Resolved]
  - Off label use [Unknown]
  - Exposure during pregnancy [Unknown]

NARRATIVE: CASE EVENT DATE: 20220101
